FAERS Safety Report 4598509-3 (Version None)
Quarter: 2005Q1

REPORT INFORMATION
  Report Type: 
  Country: None (occurrence: None)
  Receive Date: 20050302
  Receipt Date: 20050208
  Transmission Date: 20050727
  Serious: No
  Sender: FDA-Public Use
  Company Number: 200502IM000009

PATIENT
  Age: 51 Year
  Sex: Male
  Weight: 116.1208 kg

DRUGS (9)
  1. INTERFERON ALFACON-1 [Suspect]
     Indication: HEPATITIS C
     Dosage: 9 UG, QD, SUBCUTANEOUS
     Route: 058
     Dates: start: 20040908
  2. INTERFERON GAMMA-1B [Suspect]
     Indication: HEPATITIS C
     Dosage: 100 UG, SUBCUTANEOUS, TIW, SUBCUTANEOUS
     Route: 058
     Dates: start: 20040908
  3. RIBAVIRIN [Suspect]
     Indication: HEPATITIS C
     Dosage: 1200 MG, QD, ORAL
     Route: 048
     Dates: start: 20040908, end: 20040207
  4. VERAPAMIL [Concomitant]
  5. ATENOLOL [Concomitant]
  6. POTASSIUM CHLORIDE [Concomitant]
  7. VIAGRA [Concomitant]
  8. NAPROXEN [Concomitant]
  9. COLCHICINE [Concomitant]

REACTIONS (1)
  - CATATONIA [None]
